FAERS Safety Report 19855559 (Version 3)
Quarter: 2022Q1

REPORT INFORMATION
  Report Type: Spontaneous
  Country: JP (occurrence: JP)
  Receive Date: 20210920
  Receipt Date: 20220218
  Transmission Date: 20220423
  Serious: Yes (Hospitalization, Other)
  Sender: FDA-Public Use
  Company Number: JP-ELI_LILLY_AND_COMPANY-JP202109004970

PATIENT
  Age: 0 Year
  Sex: Female
  Weight: 36 kg

DRUGS (4)
  1. NECITUMUMAB [Suspect]
     Active Substance: NECITUMUMAB
     Indication: Non-small cell lung cancer stage III
     Dosage: 800 MG, UNKNOWN
     Route: 041
     Dates: start: 20210511, end: 20210719
  2. CISPLATIN [Concomitant]
     Active Substance: CISPLATIN
     Indication: Non-small cell lung cancer stage III
     Dosage: UNK
     Route: 065
     Dates: start: 20210511
  3. GEMCITABINE [Concomitant]
     Active Substance: GEMCITABINE
     Indication: Non-small cell lung cancer stage III
     Dosage: UNK
     Dates: start: 20210511
  4. MAGNESIUM SULFATE [Concomitant]
     Active Substance: MAGNESIUM SULFATE
     Indication: Electrolyte substitution therapy
     Dosage: UNK
     Dates: start: 20210511, end: 20220103

REACTIONS (6)
  - Organising pneumonia [Recovering/Resolving]
  - Bronchopulmonary aspergillosis [Recovering/Resolving]
  - Febrile neutropenia [Unknown]
  - Deep vein thrombosis [Recovering/Resolving]
  - Nausea [Recovered/Resolved]
  - Dermatitis acneiform [Recovering/Resolving]

NARRATIVE: CASE EVENT DATE: 20210520
